FAERS Safety Report 9612829 (Version 1)
Quarter: 2013Q4

REPORT INFORMATION
  Report Type: Spontaneous
  Country: NL (occurrence: NL)
  Receive Date: 20131010
  Receipt Date: 20131010
  Transmission Date: 20140711
  Serious: Yes (Hospitalization, Other)
  Sender: FDA-Public Use
  Company Number: NL-AMGEN-NLDSP2013070430

PATIENT
  Age: 67 Year
  Sex: Female

DRUGS (4)
  1. XGEVA [Suspect]
     Indication: PRODUCT USED FOR UNKNOWN INDICATION
     Dosage: 120 MG, Q4WK
     Route: 058
     Dates: start: 20130808
  2. XELODA [Concomitant]
     Dosage: 500 MG, BID
  3. METOPROLOL [Concomitant]
     Dosage: UNK UNK, QD
  4. TRANSTEC [Concomitant]
     Dosage: 105 MUG, UNK

REACTIONS (1)
  - Bladder cancer [Unknown]
